FAERS Safety Report 6767755-2 (Version None)
Quarter: 2010Q2

REPORT INFORMATION
  Report Type: 
  Country: None (occurrence: None)
  Receive Date: 20100610
  Receipt Date: 20100601
  Transmission Date: 20101027
  Serious: Yes (Other)
  Sender: FDA-Public Use
  Company Number: 012796

PATIENT
  Sex: Female
  Weight: 2.6 kg

DRUGS (2)
  1. KEPPRA [Suspect]
     Dosage: (750 MG BID TRANSPLACENTAL)
     Route: 064
     Dates: end: 20090625
  2. DEPAKENE [Concomitant]

REACTIONS (3)
  - MATERNAL DRUGS AFFECTING FOETUS [None]
  - NEONATAL ANOXIA [None]
  - PREMATURE BABY [None]
